FAERS Safety Report 17412532 (Version 1)
Quarter: 2020Q1

REPORT INFORMATION
  Report Type: Spontaneous
  Country: US (occurrence: US)
  Receive Date: 20200128
  Receipt Date: 20200128
  Transmission Date: 20200409
  Serious: Yes (Disabling, Other)
  Sender: FDA-Public Use
  Company Number: None

PATIENT
  Age: 64 Year
  Sex: Female
  Weight: 56.7 kg

DRUGS (12)
  1. VITAMIN D3 [Concomitant]
     Active Substance: CHOLECALCIFEROL
  2. ZIOPTAN [Concomitant]
     Active Substance: TAFLUPROST
  3. IBUPROFEN. [Concomitant]
     Active Substance: IBUPROFEN
  4. DORZOLAMIDE [Suspect]
     Active Substance: DORZOLAMIDE
  5. VENTOLIN [Concomitant]
     Active Substance: ALBUTEROL SULFATE
  6. FISH OIL [Concomitant]
     Active Substance: FISH OIL
  7. RHOPRESSA [Suspect]
     Active Substance: NETARSUDIL MESYLATE
     Indication: OPEN ANGLE GLAUCOMA
     Dosage: ?          OTHER STRENGTH:.02;QUANTITY:1 DROP IN BOTH EYE;?
     Route: 047
     Dates: start: 20180827, end: 20191001
  8. LUTEIN [Concomitant]
     Active Substance: LUTEIN
  9. ALBUTEROL. [Concomitant]
     Active Substance: ALBUTEROL
  10. MAGNESIUM OXIDE. [Concomitant]
     Active Substance: MAGNESIUM OXIDE
  11. RESVERATROL [Concomitant]
     Active Substance: DIETARY SUPPLEMENT\RESVERATROL
  12. XEAXANTHIN [Concomitant]

REACTIONS (6)
  - Conjunctival oedema [None]
  - Dry eye [None]
  - Lacrimation increased [None]
  - Ocular hyperaemia [None]
  - Corneal oedema [None]
  - Conjunctivitis [None]

NARRATIVE: CASE EVENT DATE: 20180827
